FAERS Safety Report 5711509-2 (Version None)
Quarter: 2008Q2

REPORT INFORMATION
  Report Type: 
  Country: None (occurrence: None)
  Receive Date: 20080418
  Receipt Date: 20080418
  Transmission Date: 20081010
  Serious: Yes (Hospitalization)
  Sender: FDA-Public Use
  Company Number: None

PATIENT
  Age: 72 Year
  Sex: Male
  Weight: 92.1 kg

DRUGS (2)
  1. ATENOLOL [Suspect]
     Indication: HYPERTENSION
     Dosage: 12.5MG EVERY DAY PO
     Route: 048
     Dates: start: 19970813, end: 20080402
  2. CLONIDINE HCL [Suspect]
     Indication: HYPERTENSION
     Dosage: 0.1MG BID PO
     Route: 048
     Dates: start: 19950201

REACTIONS (1)
  - BRADYCARDIA [None]
